FAERS Safety Report 7755407-1 (Version None)
Quarter: 2011Q3

REPORT INFORMATION
  Report Type: 
  Country: None (occurrence: None)
  Receive Date: 20110916
  Receipt Date: 20110908
  Transmission Date: 20111222
  Serious: Yes (Other)
  Sender: FDA-Public Use
  Company Number: JM-JNJFOC-20080703941

PATIENT
  Sex: Male
  Weight: 2.5 kg

DRUGS (4)
  1. HALDOL [Suspect]
     Indication: ILL-DEFINED DISORDER
  2. LITHIUM CARBONATE [Suspect]
     Indication: PRODUCT USED FOR UNKNOWN INDICATION
  3. COGENTIN [Suspect]
     Indication: ILL-DEFINED DISORDER
  4. LITHIUM CARBONATE [Suspect]
     Indication: PRODUCT USED FOR UNKNOWN INDICATION

REACTIONS (2)
  - SMALL FOR DATES BABY [None]
  - PLACENTAL DISORDER [None]
